FAERS Safety Report 23455928 (Version 1)
Quarter: 2024Q1

REPORT INFORMATION
  Report Type: Spontaneous
  Country: US (occurrence: US)
  Receive Date: 20240130
  Receipt Date: 20240130
  Transmission Date: 20240410
  Serious: Yes (Life-Threatening)
  Sender: FDA-Public Use
  Company Number: US-TEVA-VS-3148852

PATIENT
  Sex: Male

DRUGS (1)
  1. EPINEPHRINE [Suspect]
     Active Substance: EPINEPHRINE
     Indication: Allergy to arthropod bite
     Dosage: FORM STRENGTH: 0.3 MG / 0.3 ML
     Route: 065

REACTIONS (2)
  - Device malfunction [Unknown]
  - Intentional device misuse [Unknown]
